FAERS Safety Report 26209155 (Version 1)
Quarter: 2025Q4

REPORT INFORMATION
  Report Type: Spontaneous
  Country: CA (occurrence: CA)
  Receive Date: 20251229
  Receipt Date: 20251229
  Transmission Date: 20260118
  Serious: Yes (Other)
  Sender: BAYER HEALTHCARE PHARMACEUTICALS INC.
  Company Number: CA-BAYER-2025A168766

PATIENT
  Sex: Male

DRUGS (1)
  1. NUBEQA [Suspect]
     Active Substance: DAROLUTAMIDE

REACTIONS (4)
  - Tooth extraction [None]
  - Arterial rupture [None]
  - Arterial haemorrhage [None]
  - Tooth loss [None]
